FAERS Safety Report 25389209 (Version 1)
Quarter: 2025Q2

REPORT INFORMATION
  Report Type: Spontaneous
  Country: RO (occurrence: None)
  Receive Date: 20250603
  Receipt Date: 20250603
  Transmission Date: 20250717
  Serious: Yes (Life-Threatening, Hospitalization)
  Sender: UMEDICA LABS
  Company Number: RO-Umedica-000667

PATIENT
  Age: 23 Year
  Sex: Male

DRUGS (1)
  1. CARBAMAZEPINE [Suspect]
     Active Substance: CARBAMAZEPINE
     Indication: Product used for unknown indication
     Route: 048

REACTIONS (14)
  - Cardiotoxicity [Recovered/Resolved]
  - Coma [Recovered/Resolved]
  - Suicide attempt [Unknown]
  - Brain oedema [Recovering/Resolving]
  - Haematoma [Recovering/Resolving]
  - Rhabdomyolysis [Unknown]
  - Seizure [Unknown]
  - Fall [Unknown]
  - Injury [Unknown]
  - Drug level increased [Recovered/Resolved]
  - Toxicity to various agents [Recovered/Resolved]
  - Respiratory failure [Unknown]
  - Intentional overdose [Unknown]
  - Leukocytosis [Unknown]
